FAERS Safety Report 24923501 (Version 1)
Quarter: 2025Q1

REPORT INFORMATION
  Report Type: Spontaneous
  Country: US (occurrence: US)
  Receive Date: 20250204
  Receipt Date: 20250204
  Transmission Date: 20250409
  Serious: No
  Sender: SANOFI AVENTIS
  Company Number: US-SA-2025SA033108

PATIENT
  Age: 48 Year
  Sex: Female

DRUGS (1)
  1. AGALSIDASE BETA [Suspect]
     Active Substance: AGALSIDASE BETA

REACTIONS (2)
  - Globotriaosylceramide increased [Unknown]
  - Globotriaosylsphingosine increased [Unknown]

NARRATIVE: CASE EVENT DATE: 20250108
